FAERS Safety Report 20569600 (Version 5)
Quarter: 2024Q2

REPORT INFORMATION
  Report Type: Spontaneous
  Country: JP (occurrence: JP)
  Receive Date: 20220309
  Receipt Date: 20240412
  Transmission Date: 20240716
  Serious: Yes (Other)
  Sender: FDA-Public Use
  Company Number: JP-BRISTOL-MYERS SQUIBB COMPANY-BMS-2022-034028

PATIENT
  Age: 65 Year
  Sex: Male
  Weight: 78.2 kg

DRUGS (4)
  1. YERVOY [Suspect]
     Active Substance: IPILIMUMAB
     Indication: Non-small cell lung cancer recurrent
     Dosage: UNK
     Route: 041
     Dates: start: 20211223
  2. OPDIVO [Suspect]
     Active Substance: NIVOLUMAB
     Indication: Non-small cell lung cancer recurrent
     Route: 041
     Dates: start: 20211223
  3. CARBOPLATIN [Concomitant]
     Active Substance: CARBOPLATIN
     Indication: Non-small cell lung cancer recurrent
     Dates: start: 20231215
  4. PEMETREXED [Concomitant]
     Active Substance: PEMETREXED
     Indication: Non-small cell lung cancer recurrent
     Dates: start: 20231215

REACTIONS (4)
  - Immune-mediated dermatitis [Unknown]
  - Non-small cell lung cancer [Unknown]
  - Pyrexia [Unknown]
  - Adverse event [Unknown]

NARRATIVE: CASE EVENT DATE: 20211227
